FAERS Safety Report 15931824 (Version 2)
Quarter: 2019Q1

REPORT INFORMATION
  Report Type: Spontaneous
  Country: US (occurrence: US)
  Receive Date: 20190207
  Receipt Date: 20190215
  Transmission Date: 20190417
  Serious: Yes (Other)
  Sender: FDA-Public Use
  Company Number: US-ASTRAZENECA-2018SF21662

PATIENT

DRUGS (3)
  1. METRONIDAZOLE. [Concomitant]
     Active Substance: METRONIDAZOLE
     Route: 061
     Dates: start: 20160315
  2. PRILOSEC [Suspect]
     Active Substance: OMEPRAZOLE MAGNESIUM
     Route: 048
  3. PRILOSEC [Suspect]
     Active Substance: OMEPRAZOLE MAGNESIUM
     Route: 048
     Dates: start: 20030223, end: 20160116

REACTIONS (1)
  - Chronic kidney disease [Unknown]
